FAERS Safety Report 8798528 (Version 1)
Quarter: 2012Q4

REPORT INFORMATION
  Report Type: Spontaneous
  Country: US (occurrence: None)
  Receive Date: 20120917
  Receipt Date: 20120917
  Transmission Date: 20130627
  Serious: Yes (Hospitalization)
  Sender: FDA-Public Use
  Company Number: None

PATIENT
  Age: 16 Year
  Sex: Male
  Weight: 58.97 kg

DRUGS (1)
  1. BACTRIM [Suspect]
     Indication: INFECTION MRSA

REACTIONS (5)
  - Rash [None]
  - Pyrexia [None]
  - Pain [None]
  - Cough [None]
  - Viral infection [None]
